FAERS Safety Report 4605294-5 (Version None)
Quarter: 2005Q1

REPORT INFORMATION
  Report Type: 
  Country: None (occurrence: None)
  Receive Date: 20050310
  Receipt Date: 20040402
  Transmission Date: 20050727
  Serious: No
  Sender: FDA-Public Use
  Company Number: US-BRISTOL-MYERS SQUIBB COMPANY-12551867

PATIENT
  Age: 63 Year
  Sex: Female

DRUGS (4)
  1. MONISTAT [Suspect]
     Indication: VAGINAL MYCOSIS
     Route: 067
     Dates: start: 20040328, end: 20040328
  2. LANOXIN [Concomitant]
  3. TENORMIN [Concomitant]
  4. LIPITOR [Concomitant]

REACTIONS (3)
  - BLISTER [None]
  - FALSE POSITIVE LABORATORY RESULT [None]
  - VAGINAL BURNING SENSATION [None]
